FAERS Safety Report 5852022-1 (Version None)
Quarter: 2008Q3

REPORT INFORMATION
  Report Type: 
  Country: None (occurrence: None)
  Receive Date: 20080820
  Receipt Date: 20080811
  Transmission Date: 20090109
  Serious: Yes (Other)
  Sender: FDA-Public Use
  Company Number: US-PFIZER INC-2008067446

PATIENT
  Sex: Female
  Weight: 74.8 kg

DRUGS (7)
  1. LIPITOR [Suspect]
     Indication: BLOOD CHOLESTEROL INCREASED
  2. GENERAL NUTRIENTS [Suspect]
  3. LOPRESSOR [Concomitant]
  4. NORVASC [Concomitant]
  5. CYTOTEC [Concomitant]
  6. OMEPRAZOLE [Concomitant]
  7. ACETYLSALICYLIC ACID SRT [Concomitant]

REACTIONS (6)
  - CHROMATURIA [None]
  - FEELING HOT [None]
  - HEPATIC STEATOSIS [None]
  - HEPATOMEGALY [None]
  - PAIN [None]
  - PARAESTHESIA [None]
